FAERS Safety Report 5169254-0 (Version None)
Quarter: 2006Q4

REPORT INFORMATION
  Report Type: 
  Country: None (occurrence: None)
  Receive Date: 20061127
  Receipt Date: 20061116
  Transmission Date: 20070319
  Serious: No
  Sender: FDA-Public Use
  Company Number: 232995

PATIENT
  Age: 45 Year
  Sex: Female

DRUGS (4)
  1. AVASTIN [Suspect]
     Indication: RECTAL CANCER
     Dosage: UNK, UNK, UNK
     Dates: start: 20061015
  2. FLUOROURACIL [Suspect]
     Indication: RECTAL CANCER
     Dosage: UNK, UNK, UNK
     Dates: start: 20061015
  3. LEUCOVORIN CALCIUM [Concomitant]
  4. IRINOTECAN HCL [Suspect]
     Indication: RECTAL CANCER
     Dosage: UNK, UNK, UNK
     Dates: start: 20061015

REACTIONS (2)
  - INFECTION [None]
  - TUMOUR NECROSIS [None]
